FAERS Safety Report 19755538 (Version 2)
Quarter: 2021Q3

REPORT INFORMATION
  Report Type: Spontaneous
  Country: CH (occurrence: CH)
  Receive Date: 20210827
  Receipt Date: 20210909
  Transmission Date: 20211014
  Serious: Yes (Hospitalization)
  Sender: FDA-Public Use
  Company Number: CH-BAYER-2021-197721

PATIENT
  Age: 59 Year
  Sex: Male
  Weight: 90 kg

DRUGS (1)
  1. GADOVIST [Suspect]
     Active Substance: GADOBUTROL
     Dosage: 10 ML, ONCE
     Route: 042
     Dates: start: 20210817, end: 20210817

REACTIONS (10)
  - Foaming at mouth [None]
  - Nausea [None]
  - Erythema [None]
  - Dyspnoea [None]
  - Lip swelling [None]
  - Cyanosis [None]
  - Anaphylactic shock [None]
  - Loss of consciousness [None]
  - Tracheal oedema [None]
  - Syncope [None]

NARRATIVE: CASE EVENT DATE: 20210817
